FAERS Safety Report 9857906 (Version 1)
Quarter: 2014Q1

REPORT INFORMATION
  Report Type: Report from Study
  Country: AR (occurrence: AR)
  Receive Date: 20140131
  Receipt Date: 20140131
  Transmission Date: 20141002
  Serious: Yes (Other)
  Sender: FDA-Public Use
  Company Number: AR-ORION CORPORATION ORION PHARMA-ENTC2014-0028

PATIENT
  Sex: Female

DRUGS (2)
  1. STALEVO [Suspect]
     Indication: PARKINSON^S DISEASE
     Dosage: STRENGTH: 150 MG AND 200 MG
     Route: 048
  2. STALEVO [Suspect]
     Dosage: DOSE REDUCED
     Route: 048
     Dates: start: 201311, end: 20140123

REACTIONS (4)
  - Therapy cessation [Unknown]
  - Osteoarthritis [Not Recovered/Not Resolved]
  - Nervousness [Not Recovered/Not Resolved]
  - Tremor [Not Recovered/Not Resolved]
